FAERS Safety Report 19488657 (Version 1)
Quarter: 2021Q3

REPORT INFORMATION
  Report Type: Spontaneous
  Country: FR (occurrence: FR)
  Receive Date: 20210703
  Receipt Date: 20210703
  Transmission Date: 20211014
  Serious: Yes (Hospitalization)
  Sender: FDA-Public Use
  Company Number: FR-TEVA-2021-FR-1927857

PATIENT
  Age: 83 Year
  Sex: Female
  Weight: 93 kg

DRUGS (15)
  1. ATORVASTATINE [Concomitant]
     Active Substance: ATORVASTATIN
  2. URAPIDIL [Concomitant]
     Active Substance: URAPIDIL
  3. TRANSIPEG [Concomitant]
  4. OXAZEPAM. [Concomitant]
     Active Substance: OXAZEPAM
  5. COMIRNATY [Suspect]
     Active Substance: TOZINAMERAN
     Indication: COVID-19 IMMUNISATION
     Dosage: D1 , UNIT DOSE : 1 DF , ROUTE OF ADMINISTRATION : LEFT DELTOID
     Route: 030
     Dates: end: 20210308
  6. ZOPICLONE [Concomitant]
     Active Substance: ZOPICLONE
  7. LEVOTHYROX [Concomitant]
     Active Substance: LEVOTHYROXINE
  8. LETROZOLE. [Suspect]
     Active Substance: LETROZOLE
     Indication: BREAST CANCER
     Dosage: 1 DF
  9. FUROSEMIDE. [Concomitant]
     Active Substance: FUROSEMIDE
  10. XARELTO [Concomitant]
     Active Substance: RIVAROXABAN
  11. AMLODIPINE [Concomitant]
     Active Substance: AMLODIPINE BESYLATE
  12. DIFFU K [Concomitant]
     Active Substance: POTASSIUM CHLORIDE
  13. BISOPROLOL (FUMARATE ACIDE DE) [Concomitant]
     Active Substance: BISOPROLOL FUMARATE
  14. PARACETAMOL [Concomitant]
     Active Substance: ACETAMINOPHEN
  15. METFORMINE [Concomitant]
     Active Substance: METFORMIN HYDROCHLORIDE

REACTIONS (1)
  - Ischaemic stroke [Recovered/Resolved with Sequelae]

NARRATIVE: CASE EVENT DATE: 20210223
